FAERS Safety Report 20761320 (Version 1)
Quarter: 2022Q2

REPORT INFORMATION
  Report Type: Report from Study
  Country: US (occurrence: US)
  Receive Date: 20220428
  Receipt Date: 20220428
  Transmission Date: 20220721
  Serious: Yes (Other)
  Sender: FDA-Public Use
  Company Number: US-BRISTOL-MYERS SQUIBB COMPANY-2022-028448

PATIENT
  Age: 78 Year
  Sex: Female
  Weight: 75 kg

DRUGS (3)
  1. REVLIMID [Suspect]
     Active Substance: LENALIDOMIDE
     Indication: Plasma cell myeloma
     Dosage: DAILY 21 DAYS
     Route: 048
     Dates: start: 20190517
  2. REVLIMID [Suspect]
     Active Substance: LENALIDOMIDE
     Indication: Metastases to kidney
  3. REVLIMID [Suspect]
     Active Substance: LENALIDOMIDE
     Indication: Investigation

REACTIONS (1)
  - Haemorrhage [Unknown]
